FAERS Safety Report 6330142-5 (Version None)
Quarter: 2009Q3

REPORT INFORMATION
  Report Type: 
  Country: None (occurrence: None)
  Receive Date: 20090827
  Receipt Date: 20090821
  Transmission Date: 20100115
  Serious: Yes (Hospitalization)
  Sender: FDA-Public Use
  Company Number: US-BIOGENIDEC-2009BI025566

PATIENT
  Age: 69 Year
  Sex: Female

DRUGS (3)
  1. AVONEX [Suspect]
     Indication: MULTIPLE SCLEROSIS
     Route: 030
     Dates: start: 20071101
  2. AVONEX [Suspect]
     Route: 030
     Dates: start: 19991201
  3. AVONEX [Suspect]
     Route: 030
     Dates: start: 20040101

REACTIONS (3)
  - CHEST PAIN [None]
  - FATIGUE [None]
  - HYPERTENSION [None]
